FAERS Safety Report 25083085 (Version 2)
Quarter: 2025Q2

REPORT INFORMATION
  Report Type: Report from Study
  Country: CA (occurrence: CA)
  Receive Date: 20250317
  Receipt Date: 20250410
  Transmission Date: 20250717
  Serious: Yes (Hospitalization, Other)
  Sender: TAKEDA
  Company Number: CA-TAKEDA-2023TUS036713

PATIENT
  Age: 74 Year
  Sex: Female

DRUGS (24)
  1. VEDOLIZUMAB [Suspect]
     Active Substance: VEDOLIZUMAB
     Indication: Crohn^s disease
  2. VEDOLIZUMAB [Suspect]
     Active Substance: VEDOLIZUMAB
     Dosage: 300 MILLIGRAM, Q4WEEKS
     Dates: start: 20210301
  3. VEDOLIZUMAB [Suspect]
     Active Substance: VEDOLIZUMAB
  4. VEDOLIZUMAB [Suspect]
     Active Substance: VEDOLIZUMAB
     Dosage: 300 MILLIGRAM, Q4WEEKS
     Dates: start: 20221215
  5. VEDOLIZUMAB [Suspect]
     Active Substance: VEDOLIZUMAB
     Dosage: 300 MILLIGRAM, Q4WEEKS
  6. PANTOPRAZOLE SODIUM [Suspect]
     Active Substance: PANTOPRAZOLE SODIUM
     Indication: Product used for unknown indication
  7. COLACE [Concomitant]
     Active Substance: DOCUSATE SODIUM
  8. SENNOSIDES A AND B [Concomitant]
     Active Substance: SENNOSIDES A AND B
  9. PREGABALIN [Concomitant]
     Active Substance: PREGABALIN
  10. POLYETHYLENE GLYCOL 3350 [Concomitant]
     Active Substance: POLYETHYLENE GLYCOL 3350
  11. FERROUS SULFATE [Concomitant]
     Active Substance: FERROUS SULFATE
  12. ROSUVASTATIN [Concomitant]
     Active Substance: ROSUVASTATIN
  13. MOMETASONE [Concomitant]
     Active Substance: MOMETASONE
  14. CHOLECALCIFEROL [Concomitant]
     Active Substance: CHOLECALCIFEROL
  15. PREDNISONE [Concomitant]
     Active Substance: PREDNISONE
  16. VITAMIN D [Concomitant]
     Active Substance: VITAMIN D NOS
  17. CALCIUM [Concomitant]
     Active Substance: CALCIUM
  18. CYCLOBENZAPRINE [Concomitant]
     Active Substance: CYCLOBENZAPRINE
  19. FOLIC ACID [Concomitant]
     Active Substance: FOLIC ACID
  20. METHOTREXATE [Concomitant]
     Active Substance: METHOTREXATE
     Dosage: 25 MILLIGRAM, 1/WEEK
  21. RISEDRONATE SODIUM [Concomitant]
     Active Substance: RISEDRONATE SODIUM
  22. TYLENOL [Concomitant]
     Active Substance: ACETAMINOPHEN
     Dosage: 650 MILLIGRAM, QID
  23. LORAZEPAM [Concomitant]
     Active Substance: LORAZEPAM
  24. SULFATRIM [Concomitant]
     Active Substance: SULFAMETHOXAZOLE\TRIMETHOPRIM
     Dosage: UNK UNK, 3/WEEK
     Dates: end: 20240901

REACTIONS (9)
  - Compression fracture [Recovering/Resolving]
  - Polymyalgia rheumatica [Recovering/Resolving]
  - Dyspnoea [Recovering/Resolving]
  - Chest pain [Recovering/Resolving]
  - Sneezing [Not Recovered/Not Resolved]
  - Off label use [Unknown]
  - Back pain [Unknown]
  - Cough [Unknown]
  - Skin lesion [Unknown]

NARRATIVE: CASE EVENT DATE: 20210301
